FAERS Safety Report 9295828 (Version 2)
Quarter: 2013Q2

REPORT INFORMATION
  Report Type: Spontaneous
  Country: US (occurrence: US)
  Receive Date: 20130517
  Receipt Date: 20130613
  Transmission Date: 20140414
  Serious: Yes (Death)
  Sender: FDA-Public Use
  Company Number: US-CELGENEUS-163-21660-13052064

PATIENT
  Age: 49 Year
  Sex: Male

DRUGS (1)
  1. ABRAXANE [Suspect]
     Indication: PANCREATIC CARCINOMA METASTATIC
     Route: 065
     Dates: start: 201301, end: 201305

REACTIONS (1)
  - Pancreatic carcinoma [Fatal]
